FAERS Safety Report 23384130 (Version 1)
Quarter: 2024Q1

REPORT INFORMATION
  Report Type: Spontaneous
  Country: US (occurrence: None)
  Receive Date: 20240109
  Receipt Date: 20240109
  Transmission Date: 20240410
  Serious: Yes (Other)
  Sender: FDA-Public Use
  Company Number: None

PATIENT
  Age: 61 Year
  Sex: Male
  Weight: 79.7 kg

DRUGS (2)
  1. VICTOZA [Suspect]
     Active Substance: LIRAGLUTIDE
     Indication: Type 2 diabetes mellitus
     Dosage: FREQUENCY : DAILY;?
     Route: 058
     Dates: start: 20231124, end: 20240105
  2. VICTOZA [Concomitant]
     Active Substance: LIRAGLUTIDE
     Dates: start: 20231124, end: 20240105

REACTIONS (7)
  - Therapy change [None]
  - Wrong product administered [None]
  - Abdominal discomfort [None]
  - Abdominal distension [None]
  - Decreased appetite [None]
  - Wrong schedule [None]
  - Blood glucose increased [None]

NARRATIVE: CASE EVENT DATE: 20240105
